FAERS Safety Report 8317741-6 (Version None)
Quarter: 2012Q2

REPORT INFORMATION
  Report Type: 
  Country: None (occurrence: None)
  Receive Date: 20120427
  Receipt Date: 20120418
  Transmission Date: 20120825
  Serious: Yes (Other)
  Sender: FDA-Public Use
  Company Number: US-BAYER-2012-038094

PATIENT
  Age: 88 Year
  Sex: Female

DRUGS (2)
  1. INTERFERON BETA-1B [Suspect]
  2. ZELBORAF [Suspect]
     Indication: MALIGNANT MELANOMA

REACTIONS (7)
  - MALIGNANT MELANOMA [None]
  - CYSTITIS [None]
  - OEDEMA PERIPHERAL [None]
  - MUSCULAR WEAKNESS [None]
  - ASTHENIA [None]
  - ABASIA [None]
  - LABORATORY TEST ABNORMAL [None]
